FAERS Safety Report 8838755 (Version 2)
Quarter: 2012Q4

REPORT INFORMATION
  Report Type: 
  Country: US (occurrence: US)
  Receive Date: 20121012
  Receipt Date: 20121114
  Transmission Date: 20130627
  Serious: Yes (Other)
  Sender: FDA-Public Use
  Company Number: CHPA2012US021545

PATIENT
  Age: 71 Year
  Sex: Female

DRUGS (2)
  1. EXCEDRIN EXTRA STRENGTH [Suspect]
     Indication: ARTHRITIS
     Dosage: 2 DF, QD
     Route: 048
     Dates: start: 2005
  2. LORAZEPAM [Concomitant]
     Dosage: Unk, Unk
     Route: 048
     Dates: start: 2004

REACTIONS (6)
  - Diabetes mellitus [Recovered/Resolved]
  - Neuropathy peripheral [Recovered/Resolved]
  - Exostosis [Recovered/Resolved]
  - Cartilage injury [Recovered/Resolved]
  - Urinary tract infection [Recovered/Resolved]
  - Incorrect drug administration duration [Unknown]
